FAERS Safety Report 12449206 (Version 1)
Quarter: 2016Q2

REPORT INFORMATION
  Report Type: Report from Study
  Country: US (occurrence: US)
  Receive Date: 20160608
  Receipt Date: 20160608
  Transmission Date: 20160815
  Serious: Yes (Death, Hospitalization)
  Sender: FDA-Public Use
  Company Number: US-ACTELION-A-NJ2016-135570

PATIENT
  Age: 86 Year
  Sex: Male

DRUGS (1)
  1. VENTAVIS [Suspect]
     Active Substance: ILOPROST
     Indication: PULMONARY ARTERIAL HYPERTENSION
     Dosage: 5 MCG, 3-9 X/DAY
     Route: 055
     Dates: start: 20110802, end: 20160511

REACTIONS (2)
  - Cardiac failure congestive [Unknown]
  - Death [Fatal]

NARRATIVE: CASE EVENT DATE: 20160511
